FAERS Safety Report 25749703 (Version 1)
Quarter: 2025Q3

REPORT INFORMATION
  Report Type: Spontaneous
  Country: KR (occurrence: KR)
  Receive Date: 20250902
  Receipt Date: 20250902
  Transmission Date: 20251020
  Serious: Yes (Other)
  Sender: BOEHRINGER INGELHEIM
  Company Number: KR-BoehringerIngelheim-2025-BI-092552

PATIENT
  Age: 52 Year
  Sex: Female

DRUGS (1)
  1. AFATINIB DIMALEATE [Suspect]
     Active Substance: AFATINIB DIMALEATE
     Indication: Chemotherapy
     Dates: start: 20230728, end: 20231030

REACTIONS (2)
  - Pruritus [Recovered/Resolved]
  - Urticaria [Recovered/Resolved]

NARRATIVE: CASE EVENT DATE: 20230807
